FAERS Safety Report 9619695 (Version 3)
Quarter: 2013Q4

REPORT INFORMATION
  Report Type: Report from Study
  Country: FR (occurrence: FR)
  Receive Date: 20131014
  Receipt Date: 20131220
  Transmission Date: 20140711
  Serious: Yes (Hospitalization)
  Sender: FDA-Public Use
  Company Number: FR-VERTEX PHARMACEUTICALS INC-2013-010185

PATIENT
  Age: 18 Year
  Sex: Female
  Weight: 46.6 kg

DRUGS (14)
  1. VX-809 FDC [Suspect]
     Indication: CYSTIC FIBROSIS
     Dosage: 400 MG, BID
     Route: 048
     Dates: start: 20130927, end: 20130928
  2. VX-770 FDC [Suspect]
     Indication: CYSTIC FIBROSIS
     Dosage: 250 MG, BID
     Route: 048
     Dates: start: 20130927, end: 20130928
  3. CREON 25000 [Concomitant]
     Indication: PANCREATIC INSUFFICIENCY
     Dosage: 11 UNK, QD
     Route: 048
     Dates: start: 19950717, end: 20130927
  4. A 313 [Concomitant]
     Indication: PANCREATIC INSUFFICIENCY
     Dosage: 2 TABS, QW
     Route: 048
     Dates: start: 19950717
  5. TOCO 500 [Concomitant]
     Indication: PANCREATIC INSUFFICIENCY
     Dosage: 1 TAB, QD
     Route: 048
     Dates: start: 19950717, end: 20130926
  6. STEROGYL [Concomitant]
     Indication: PANCREATIC INSUFFICIENCY
     Dosage: 10 UNK, QD
     Route: 048
     Dates: start: 201202, end: 20130926
  7. SYMBICORT [Concomitant]
     Indication: ASTHMA
     Dosage: 400 UNK, BID
     Route: 055
     Dates: start: 201009, end: 20130926
  8. SINGULAIR [Concomitant]
     Indication: ASTHMA
     Dosage: 1 TAB, QD
     Route: 048
     Dates: start: 201206, end: 20130926
  9. XYZAL [Concomitant]
     Indication: ASTHMA
     Dosage: 1 TAB, QD
     Route: 048
     Dates: start: 201206, end: 20130926
  10. COLIMICIN [Concomitant]
     Indication: PSEUDOMONAS INFECTION
     Dosage: 2 UNK, BID EVERY OTHER MONTH
     Route: 055
     Dates: start: 201112, end: 20130926
  11. TOBI [Concomitant]
     Indication: PSEUDOMONAS INFECTION
     Dosage: 300 MG, BID EVERY OTHER MONTH
     Route: 055
     Dates: start: 2008, end: 20130926
  12. NASONEX [Concomitant]
     Indication: RHINITIS
     Dosage: UNK
     Dates: start: 20130829, end: 20130909
  13. PIVALONE NEOMYCINE [Concomitant]
     Indication: RHINITIS
     Dosage: 1 PUFF, BID
     Route: 045
     Dates: start: 20130902, end: 20130926
  14. AEROMIR [Concomitant]
     Indication: ASTHMA
     Dosage: 2 PUFFS, PRN
     Route: 055
     Dates: start: 2010, end: 20130926

REACTIONS (1)
  - Drug hypersensitivity [Recovered/Resolved]
